FAERS Safety Report 5236837-9 (Version None)
Quarter: 2007Q1

REPORT INFORMATION
  Report Type: 
  Country: None (occurrence: None)
  Receive Date: 20070213
  Receipt Date: 20070202
  Transmission Date: 20070707
  Serious: Yes (Other)
  Sender: FDA-Public Use
  Company Number: CA-JNJFOC-20070201027

PATIENT
  Age: 7 Decade
  Sex: Female

DRUGS (15)
  1. REMICADE [Suspect]
     Route: 042
  2. REMICADE [Suspect]
     Route: 042
  3. REMICADE [Suspect]
     Indication: DRUG USE FOR UNKNOWN INDICATION
     Dosage: 9 INFUSIONS ON UNSPECIFIED DATES
     Route: 042
  4. PREDNISONE [Concomitant]
  5. METHOTREXATE [Concomitant]
  6. PREMARIN [Concomitant]
  7. PANTOPRAZOLE SODIUM [Concomitant]
  8. NOVASEN [Concomitant]
  9. CALCIUM + VITAMIN D [Concomitant]
  10. FOLIC ACID [Concomitant]
  11. VENTOLIN [Concomitant]
  12. FLOVENT [Concomitant]
  13. ARTHROTEC [Concomitant]
  14. INTAL [Concomitant]
  15. SALOSOPYRIN [Concomitant]

REACTIONS (2)
  - HYPOAESTHESIA [None]
  - PAIN IN EXTREMITY [None]
